FAERS Safety Report 13760093 (Version 1)
Quarter: 2017Q3

REPORT INFORMATION
  Report Type: Spontaneous
  Country: JP (occurrence: JP)
  Receive Date: 20170717
  Receipt Date: 20170717
  Transmission Date: 20171127
  Serious: Yes (Death, Hospitalization, Other)
  Sender: FDA-Public Use
  Company Number: JP-SA-201021917GPV

PATIENT
  Age: 50 Year
  Sex: Male

DRUGS (13)
  1. FLUDARABINE PHOSPHATE. [Suspect]
     Active Substance: FLUDARABINE PHOSPHATE
     Indication: REFRACTORY CYTOPENIA WITH UNILINEAGE DYSPLASIA
     Dosage: 90 MG/M2 UNK
     Route: 065
     Dates: start: 200803
  2. FLUDARABINE PHOSPHATE. [Suspect]
     Active Substance: FLUDARABINE PHOSPHATE
     Indication: MYELODYSPLASTIC SYNDROME
     Dosage: 90 MG/M2 UNK
     Route: 065
     Dates: start: 200803
  3. ARA-C [Suspect]
     Active Substance: CYTARABINE
     Indication: CORD BLOOD TRANSPLANT THERAPY
     Dosage: 24000 MG/M2 UNK
     Dates: start: 200803, end: 2008
  4. ARA-C [Suspect]
     Active Substance: CYTARABINE
     Indication: BONE MARROW CONDITIONING REGIMEN
     Dosage: 24000 MG/M2 UNK
     Dates: start: 200803, end: 2008
  5. METHOTREXATE. [Suspect]
     Active Substance: METHOTREXATE
     Indication: PROPHYLAXIS AGAINST GRAFT VERSUS HOST DISEASE
     Dosage: SHORT TERM
     Route: 065
     Dates: start: 2008
  6. FLUDARABINE PHOSPHATE. [Suspect]
     Active Substance: FLUDARABINE PHOSPHATE
     Indication: BONE MARROW CONDITIONING REGIMEN
     Dosage: 90 MG/M2 UNK
     Route: 065
     Dates: start: 200803
  7. CYCLOSPORIN A [Concomitant]
     Active Substance: CYCLOSPORINE
     Indication: PROPHYLAXIS AGAINST GRAFT VERSUS HOST DISEASE
     Dosage: UNK, UNK
     Dates: start: 200803
  8. HEPARIN [Concomitant]
     Active Substance: HEPARIN SODIUM
     Indication: PROPHYLAXIS
     Dosage: UNK, UNK DOSE:5000 UNIT(S)
     Route: 065
     Dates: start: 200803
  9. FLUDARABINE PHOSPHATE. [Suspect]
     Active Substance: FLUDARABINE PHOSPHATE
     Indication: CORD BLOOD TRANSPLANT THERAPY
     Dosage: 90 MG/M2 UNK
     Route: 065
     Dates: start: 200803
  10. ARA-C [Suspect]
     Active Substance: CYTARABINE
     Indication: MYELODYSPLASTIC SYNDROME
     Dosage: 24000 MG/M2 UNK
     Dates: start: 200803, end: 2008
  11. ARA-C [Suspect]
     Active Substance: CYTARABINE
     Indication: REFRACTORY CYTOPENIA WITH UNILINEAGE DYSPLASIA
     Dosage: 24000 MG/M2 UNK
     Dates: start: 200803, end: 2008
  12. GRANULOCYTE COLONY STIMULATING FACTOR [Concomitant]
     Active Substance: GRANULOCYTE COLONY-STIMULATING FACTOR NOS
     Indication: CORD BLOOD TRANSPLANT THERAPY
     Dosage: FROM DAY 1 AFTER CBT
     Route: 042
     Dates: start: 200803
  13. GRANULOCYTE COLONY STIMULATING FACTOR [Concomitant]
     Active Substance: GRANULOCYTE COLONY-STIMULATING FACTOR NOS
     Indication: CORD BLOOD TRANSPLANT THERAPY
     Dosage: FROM DAY 1
     Route: 065
     Dates: start: 200803

REACTIONS (20)
  - Dyspnoea exertional [Recovering/Resolving]
  - Lung infiltration [Recovering/Resolving]
  - Off label use [Unknown]
  - PCO2 decreased [Recovering/Resolving]
  - Hypoxia [Recovering/Resolving]
  - Adenoviral haemorrhagic cystitis [Not Recovered/Not Resolved]
  - Rales [Recovering/Resolving]
  - Fibrin D dimer increased [Recovering/Resolving]
  - Computerised tomogram thorax abnormal [Recovering/Resolving]
  - Febrile neutropenia [Unknown]
  - Human herpes virus 6 serology positive [Unknown]
  - Acute graft versus host disease in skin [Recovered/Resolved]
  - Interstitial lung disease [Fatal]
  - Bronchoalveolar lavage abnormal [Recovering/Resolving]
  - PO2 decreased [Recovering/Resolving]
  - Blood pH increased [Recovering/Resolving]
  - Multiple organ dysfunction syndrome [Fatal]
  - Pulmonary alveolar haemorrhage [Recovering/Resolving]
  - Lung consolidation [Recovering/Resolving]
  - Cytomegalovirus test positive [Not Recovered/Not Resolved]

NARRATIVE: CASE EVENT DATE: 2008
